FAERS Safety Report 5589293-5 (Version None)
Quarter: 2008Q1

REPORT INFORMATION
  Report Type: 
  Country: None (occurrence: None)
  Receive Date: 20080109
  Receipt Date: 20080109
  Transmission Date: 20080703
  Serious: No
  Sender: FDA-Public Use
  Company Number: None

PATIENT

DRUGS (1)
  1. CHANTIX [Suspect]
     Indication: SMOKING CESSATION THERAPY
     Dosage: 1MG BID
     Dates: start: 20071201

REACTIONS (3)
  - DEPRESSION [None]
  - DISEASE RECURRENCE [None]
  - SUICIDAL BEHAVIOUR [None]
